FAERS Safety Report 7401665-2 (Version None)
Quarter: 2011Q2

REPORT INFORMATION
  Report Type: 
  Country: None (occurrence: None)
  Receive Date: 20110408
  Receipt Date: 20110329
  Transmission Date: 20111010
  Serious: No
  Sender: FDA-Public Use
  Company Number: US-BIOGENIDEC-2011BI011889

PATIENT
  Sex: Female

DRUGS (5)
  1. ATIVAN [Concomitant]
     Indication: SLEEP DISORDER
  2. AVONEX [Suspect]
     Indication: MULTIPLE SCLEROSIS
     Route: 030
     Dates: start: 20031003
  3. KLONOPIN [Concomitant]
     Indication: SLEEP DISORDER
  4. TRILEPTAL [Concomitant]
     Indication: SLEEP DISORDER
  5. VESICARE [Concomitant]
     Indication: SLEEP DISORDER

REACTIONS (2)
  - SEASONAL ALLERGY [None]
  - BRONCHITIS [None]
